FAERS Safety Report 15120254 (Version 1)
Quarter: 2018Q3

REPORT INFORMATION
  Report Type: Report from Study
  Country: FR (occurrence: FR)
  Receive Date: 20180709
  Receipt Date: 20180709
  Transmission Date: 20181010
  Serious: Yes (Hospitalization, Other)
  Sender: FDA-Public Use
  Company Number: FR-JAZZ-2018-FR-010287

PATIENT

DRUGS (1)
  1. DEFITELIO [Suspect]
     Active Substance: DEFIBROTIDE SODIUM
     Indication: PROPHYLAXIS
     Dosage: 19 MG/KG, QD
     Route: 042
     Dates: start: 20150108, end: 20150202

REACTIONS (6)
  - Rash maculo-papular [Unknown]
  - Vomiting [Unknown]
  - Autoimmune haemolytic anaemia [Unknown]
  - Pyrexia [Unknown]
  - Sepsis [Unknown]
  - Rhinovirus infection [Unknown]

NARRATIVE: CASE EVENT DATE: 20150224
